FAERS Safety Report 8925022 (Version 1)
Quarter: 2012Q4

REPORT INFORMATION
  Report Type: Spontaneous
  Country: US (occurrence: None)
  Receive Date: 20121126
  Receipt Date: 20121126
  Transmission Date: 20130627
  Serious: Yes (Death)
  Sender: FDA-Public Use
  Company Number: None

PATIENT
  Sex: Male
  Weight: 65.77 kg

DRUGS (2)
  1. METOLAZONE [Suspect]
     Indication: DIURESIS
     Dosage: 2.5 mg every other day } odd days
  2. PLAVIX [Suspect]
     Indication: THROMBOSIS PROPHYLAXIS
     Dosage: 75 mg every other day (even days)

REACTIONS (2)
  - Pruritus generalised [None]
  - Oedema peripheral [None]
